FAERS Safety Report 4753848-8 (Version None)
Quarter: 2005Q3

REPORT INFORMATION
  Report Type: 
  Country: None (occurrence: None)
  Receive Date: 20050826
  Receipt Date: 20010124
  Transmission Date: 20060218
  Serious: Yes (Hospitalization)
  Sender: FDA-Public Use
  Company Number: FR-GLAXOSMITHKLINE-B0097310B

PATIENT
  Sex: Female
  Weight: 2.1 kg

DRUGS (7)
  1. RETROVIR [Suspect]
     Indication: ANTIVIRAL PROPHYLAXIS
     Route: 048
  2. ZIDOVUDINE [Suspect]
     Indication: HIV INFECTION
  3. ZIDOVUDINE [Suspect]
     Indication: ANTIVIRAL PROPHYLAXIS
     Dates: start: 20000204, end: 20000204
  4. PARACETAMOL [Concomitant]
  5. DIANTALVIC [Concomitant]
     Indication: MIGRAINE
  6. METHYLDOPA [Concomitant]
  7. LOXEN [Concomitant]

REACTIONS (11)
  - ANAEMIA MACROCYTIC [None]
  - BLOOD CREATINE PHOSPHOKINASE INCREASED [None]
  - BLOOD LACTIC ACID INCREASED [None]
  - CAESAREAN SECTION [None]
  - DRUG EXPOSURE DURING PREGNANCY [None]
  - FOETAL GROWTH RETARDATION [None]
  - HYPOTONIA [None]
  - MACROCYTOSIS [None]
  - NEUTROPENIA [None]
  - SMALL FOR DATES BABY [None]
  - TORTICOLLIS [None]
